FAERS Safety Report 6618005-9 (Version None)
Quarter: 2010Q1

REPORT INFORMATION
  Report Type: 
  Country: None (occurrence: None)
  Receive Date: 20100223
  Receipt Date: 20091210
  Transmission Date: 20100710
  Serious: Yes (Other)
  Sender: FDA-Public Use
  Company Number: 8044286

PATIENT
  Sex: Female
  Weight: 53 kg

DRUGS (4)
  1. CIMZIA [Suspect]
     Indication: CROHN'S DISEASE
     Dosage: (400 MG 1X/MONTH, RECEIVED ON 13-JAN-09, 10-FEB-09, 10-MAR-2009 SUBCUTANEOUS); SEE IMAGE
     Route: 058
     Dates: start: 20080901
  2. REMICADE [Concomitant]
  3. HUMIRA [Concomitant]
  4. TARDYFERON [Concomitant]

REACTIONS (5)
  - CAESAREAN SECTION [None]
  - CROHN'S DISEASE [None]
  - DRUG EFFECT DECREASED [None]
  - PREGNANCY [None]
  - WEIGHT GAIN POOR [None]
